FAERS Safety Report 11067565 (Version 1)
Quarter: 2015Q2

REPORT INFORMATION
  Report Type: Spontaneous
  Country: US (occurrence: US)
  Receive Date: 20150427
  Receipt Date: 20150427
  Transmission Date: 20150821
  Serious: No
  Sender: FDA-Public Use
  Company Number: US-TEVA-504055USA

PATIENT
  Sex: Female

DRUGS (1)
  1. BUMETANIDE. [Suspect]
     Active Substance: BUMETANIDE

REACTIONS (1)
  - Hearing impaired [Unknown]
